FAERS Safety Report 6116200-9 (Version None)
Quarter: 2009Q1

REPORT INFORMATION
  Report Type: 
  Country: None (occurrence: None)
  Receive Date: 20090314
  Receipt Date: 20081202
  Transmission Date: 20090719
  Serious: No
  Sender: FDA-Public Use
  Company Number: US-ABBOTT-08P-163-0490701-00

PATIENT
  Sex: Female
  Weight: 44.038 kg

DRUGS (1)
  1. HUMIRA [Suspect]
     Indication: CROHN'S DISEASE
     Dosage: HAD LOADING DOSE OF 4 INJ ON 01 DEC 2008
     Route: 058
     Dates: start: 20081201

REACTIONS (1)
  - INJECTION SITE PAIN [None]
